FAERS Safety Report 23228548 (Version 1)
Quarter: 2023Q4

REPORT INFORMATION
  Report Type: Report from Study
  Country: US (occurrence: US)
  Receive Date: 20231125
  Receipt Date: 20231125
  Transmission Date: 20240110
  Serious: Yes (Other)
  Sender: FDA-Public Use
  Company Number: US-002147023-NVSC2023US250806

PATIENT
  Sex: Female

DRUGS (2)
  1. KESIMPTA [Suspect]
     Active Substance: OFATUMUMAB
     Indication: Psoriasis
     Dosage: UNK
     Route: 065
     Dates: start: 201906
  2. KESIMPTA [Suspect]
     Active Substance: OFATUMUMAB
     Dosage: UNK (INCREASED DOSE)
     Route: 065

REACTIONS (3)
  - Intervertebral disc disorder [Unknown]
  - Depression [Unknown]
  - Product use in unapproved indication [Unknown]
